FAERS Safety Report 21285826 (Version 1)
Quarter: 2022Q3

REPORT INFORMATION
  Report Type: Spontaneous
  Country: AU (occurrence: AU)
  Receive Date: 20220902
  Receipt Date: 20220902
  Transmission Date: 20221027
  Serious: Yes (Other)
  Sender: FDA-Public Use
  Company Number: AU-KOREA IPSEN Pharma-2022-24620

PATIENT
  Age: 42 Year
  Sex: Female

DRUGS (1)
  1. DYSPORT [Suspect]
     Active Substance: ABOBOTULINUMTOXINA
     Indication: Skin wrinkling
     Dosage: 7 POINTS - 2 POINTS RIGHT AND LEFT CORRUGATOR SUPERCILLI MUSCLE, 3 POINTS INTO THE PROCERUS MUSCLE
     Route: 030
     Dates: start: 20220723, end: 20220723

REACTIONS (10)
  - VIIth nerve injury [Unknown]
  - Headache [Not Recovered/Not Resolved]
  - Night sweats [Unknown]
  - Vision blurred [Recovered/Resolved]
  - Visual impairment [Recovered/Resolved]
  - Fatigue [Not Recovered/Not Resolved]
  - Photophobia [Unknown]
  - Tympanic membrane disorder [Unknown]
  - Phonophobia [Unknown]
  - Off label use [Unknown]

NARRATIVE: CASE EVENT DATE: 20220701
